FAERS Safety Report 13883791 (Version 3)
Quarter: 2022Q1

REPORT INFORMATION
  Report Type: Report from Study
  Country: FR (occurrence: FR)
  Receive Date: 20170819
  Receipt Date: 20220204
  Transmission Date: 20220424
  Serious: Yes (Life-Threatening, Hospitalization, Other)
  Sender: FDA-Public Use
  Company Number: FR-SHIRE-2017BLT002606

PATIENT

DRUGS (30)
  1. PEGASPARGASE [Suspect]
     Active Substance: PEGASPARGASE
     Indication: Acute lymphocytic leukaemia
     Dosage: 1875 IU
     Route: 042
     Dates: start: 20170303, end: 20170303
  2. PEGASPARGASE [Suspect]
     Active Substance: PEGASPARGASE
     Dosage: 1300 IU
     Route: 042
     Dates: start: 20170317, end: 20170317
  3. PEGASPARGASE [Suspect]
     Active Substance: PEGASPARGASE
     Dosage: UNK
     Route: 042
     Dates: start: 20170405, end: 20170405
  4. PEGASPARGASE [Suspect]
     Active Substance: PEGASPARGASE
     Dosage: UNK
     Route: 042
     Dates: start: 20170410, end: 20170410
  5. VINCRISTINE [Suspect]
     Active Substance: VINCRISTINE
     Indication: Acute lymphocytic leukaemia
     Dosage: 1.1 MG, UNK
     Route: 042
     Dates: start: 20170227, end: 20170320
  6. DAUNORUBICIN [Suspect]
     Active Substance: DAUNORUBICIN
     Indication: Acute lymphocytic leukaemia
     Dosage: 22.3 MG, UNK
     Route: 042
     Dates: start: 20170227, end: 20170320
  7. METHYLPREDNISOLONE [Suspect]
     Active Substance: METHYLPREDNISOLONE
     Indication: Acute lymphocytic leukaemia
     Dosage: 45 MG
     Route: 048
     Dates: start: 20170227, end: 20170320
  8. METHOTREXATE [Suspect]
     Active Substance: METHOTREXATE
     Indication: Acute lymphocytic leukaemia
     Dosage: 12 MG
     Route: 037
     Dates: start: 20170306, end: 20170315
  9. METHOTREXATE [Suspect]
     Active Substance: METHOTREXATE
     Dosage: 12 MG
     Route: 037
     Dates: start: 20170220
  10. HYDROCORTISONE [Suspect]
     Active Substance: HYDROCORTISONE
     Indication: Acute lymphocytic leukaemia
     Dosage: 12 MG
     Route: 037
     Dates: start: 20170315, end: 20170315
  11. HYDROCORTISONE [Suspect]
     Active Substance: HYDROCORTISONE
     Dosage: 15 MG
     Route: 037
     Dates: start: 20170306, end: 20170306
  12. CYTARABINE [Suspect]
     Active Substance: CYTARABINE
     Indication: Acute lymphocytic leukaemia
     Dosage: 30 MG
     Route: 037
     Dates: start: 20170306, end: 20170315
  13. TN UNSPECIFIED [Concomitant]
     Indication: Abdominal pain
  14. TN UNSPECIFIED [Concomitant]
     Indication: Pain
  15. TN UNSPECIFIED [Concomitant]
     Indication: Abdominal pain
  16. TN UNSPECIFIED [Concomitant]
     Indication: Antacid therapy
  17. TN UNSPECIFIED [Concomitant]
     Indication: Antacid therapy
  18. TN UNSPECIFIED [Concomitant]
     Indication: Hyperthermia
  19. TN UNSPECIFIED [Concomitant]
     Indication: Antibiotic prophylaxis
  20. TN UNSPECIFIED [Concomitant]
     Indication: Antibiotic prophylaxis
  21. TN UNSPECIFIED [Concomitant]
     Indication: Antibiotic prophylaxis
     Route: 065
  22. TN UNSPECIFIED [Concomitant]
     Indication: Antifungal prophylaxis
     Route: 065
  23. TN UNSPECIFIED [Concomitant]
     Indication: Prophylaxis of nausea and vomiting
     Route: 065
  24. TN UNSPECIFIED [Concomitant]
     Indication: Neuralgia
  25. TN UNSPECIFIED [Concomitant]
     Indication: Abdominal pain
  26. TN UNSPECIFIED [Concomitant]
     Indication: Abdominal pain
  27. TN UNSPECIFIED [Concomitant]
     Indication: Antithrombin III decreased
  28. TN UNSPECIFIED [Concomitant]
     Indication: Hypertension
  29. TN UNSPECIFIED [Concomitant]
     Indication: Hypertension
  30. TN UNSPECIFIED [Concomitant]
     Indication: Hypertension

REACTIONS (3)
  - Pancreatitis acute [Recovered/Resolved]
  - Weight decreased [Recovered/Resolved]
  - Hyperbilirubinaemia [Recovered/Resolved]

NARRATIVE: CASE EVENT DATE: 20170305
